FAERS Safety Report 6310536-4 (Version None)
Quarter: 2009Q3

REPORT INFORMATION
  Report Type: 
  Country: None (occurrence: None)
  Receive Date: 20090811
  Receipt Date: 20090518
  Transmission Date: 20100115
  Serious: No
  Sender: FDA-Public Use
  Company Number: 1000006310

PATIENT
  Age: 50 Year
  Sex: Female

DRUGS (15)
  1. SAVELLA [Suspect]
     Indication: FIBROMYALGIA
     Dosage: SEE IMAGE
     Route: 048
     Dates: start: 20090510, end: 20090510
  2. SAVELLA [Suspect]
     Indication: FIBROMYALGIA
     Dosage: SEE IMAGE
     Route: 048
     Dates: start: 20090511, end: 20090512
  3. SAVELLA [Suspect]
     Indication: FIBROMYALGIA
     Dosage: SEE IMAGE
     Route: 048
     Dates: start: 20090513
  4. ALLERHIST-1 [Concomitant]
  5. PROMETHAZINE [Concomitant]
  6. PHENAZOPYRIDINE HCL TAB [Concomitant]
  7. TIZANIDINE HCL [Concomitant]
  8. CIPRO [Concomitant]
  9. METFORMIN HCL [Concomitant]
  10. PROVIGIL [Concomitant]
  11. LEVOTHYROXINE SODIUM [Concomitant]
  12. ROPINIROLE [Concomitant]
  13. DARVOCET [Concomitant]
  14. AMITRIPTYLINE [Concomitant]
  15. CHLORDIAZEPOXIDE [Concomitant]

REACTIONS (2)
  - HYPERHIDROSIS [None]
  - VISION BLURRED [None]
